FAERS Safety Report 5537930-3 (Version None)
Quarter: 2007Q4

REPORT INFORMATION
  Report Type: 
  Country: None (occurrence: None)
  Receive Date: 20071207
  Receipt Date: 20071127
  Transmission Date: 20080405
  Serious: Yes (Other)
  Sender: FDA-Public Use
  Company Number: ZA-PFIZER INC-2007099379

PATIENT
  Age: 50 Year
  Sex: Female

DRUGS (3)
  1. CELEBREX [Suspect]
     Indication: OSTEOARTHRITIS
     Route: 048
     Dates: start: 20020101, end: 20070101
  2. CELEBREX [Suspect]
     Indication: PAIN
  3. ANTIHYPERTENSIVES [Concomitant]

REACTIONS (2)
  - LEUKAEMIA [None]
  - RASH [None]
